FAERS Safety Report 22270487 (Version 1)
Quarter: 2023Q2

REPORT INFORMATION
  Report Type: Report from Study
  Country: US (occurrence: US)
  Receive Date: 20230501
  Receipt Date: 20230501
  Transmission Date: 20230722
  Serious: Yes (Other)
  Sender: FDA-Public Use
  Company Number: US-ABBVIE-4333121

PATIENT
  Age: 36 Year
  Sex: Male
  Weight: 83.914 kg

DRUGS (2)
  1. HUMIRA [Suspect]
     Active Substance: ADALIMUMAB
     Indication: Crohn^s disease
     Dosage: CITRATE FREE, FORM STRENGTH 40 MICROGRAM
     Route: 058
     Dates: start: 20220304, end: 20230203
  2. HUMIRA [Suspect]
     Active Substance: ADALIMUMAB
     Dosage: CITRATE FREE,  FORM STRENGTH 40 MILLIGRAM
     Route: 058
     Dates: start: 202303

REACTIONS (2)
  - Ligament rupture [Recovering/Resolving]
  - Pain [Unknown]

NARRATIVE: CASE EVENT DATE: 20230201
